FAERS Safety Report 8409950-2 (Version None)
Quarter: 2012Q2

REPORT INFORMATION
  Report Type: 
  Country: None (occurrence: None)
  Receive Date: 20120605
  Receipt Date: 20120530
  Transmission Date: 20120825
  Serious: Yes (Death, Hospitalization)
  Sender: FDA-Public Use
  Company Number: GB-TEVA-338117ISR

PATIENT
  Age: 43 Year
  Sex: Male

DRUGS (8)
  1. OSELTAMIVIR [Concomitant]
     Indication: EVIDENCE BASED TREATMENT
     Route: 065
  2. CYCLOSPORINE [Suspect]
     Indication: VASCULITIS
     Route: 048
  3. TEICOPLANIN [Concomitant]
     Indication: EVIDENCE BASED TREATMENT
     Route: 065
  4. MEROPENEM [Concomitant]
     Indication: EVIDENCE BASED TREATMENT
     Route: 065
  5. PREDNISOLONE [Suspect]
     Indication: VASCULITIS
     Dosage: 60MG
     Route: 065
  6. CLARITHROMYCIN [Suspect]
     Indication: MYCOBACTERIUM FORTUITUM INFECTION
     Route: 065
  7. VORICONAZOLE [Suspect]
     Indication: BRONCHOPULMONARY ASPERGILLOSIS
     Route: 065
  8. CIPROFLOXACIN [Suspect]
     Indication: MYCOBACTERIUM FORTUITUM INFECTION
     Route: 065

REACTIONS (10)
  - RESPIRATORY FAILURE [None]
  - HALLUCINATION, VISUAL [None]
  - HAEMOPTYSIS [None]
  - NEUTROPENIC SEPSIS [None]
  - H1N1 INFLUENZA [None]
  - RENAL FAILURE [None]
  - CARDIO-RESPIRATORY ARREST [None]
  - BRONCHOPULMONARY ASPERGILLOSIS [None]
  - LIVER INJURY [None]
  - CARDIAC FAILURE [None]
